FAERS Safety Report 19414337 (Version 2)
Quarter: 2025Q2

REPORT INFORMATION
  Report Type: Spontaneous
  Country: US (occurrence: US)
  Receive Date: 20210615
  Receipt Date: 20250526
  Transmission Date: 20250717
  Serious: Yes (Other)
  Sender: NOVO NORDISK
  Company Number: US-NOVOPROD-819394

PATIENT
  Age: 70 Year
  Sex: Female

DRUGS (5)
  1. TRESIBA [Suspect]
     Active Substance: INSULIN DEGLUDEC
     Indication: Product used for unknown indication
     Dosage: 50 IU QD ( NIGHT)
     Route: 058
  2. PREDNISONE [Suspect]
     Active Substance: PREDNISONE
     Indication: Product used for unknown indication
  3. OCTAGAM IMMUNE GLOBULIN (HUMAN) [Suspect]
     Active Substance: HUMAN IMMUNOGLOBULIN G
     Indication: Product used for unknown indication
  4. INSULIN NOS [Suspect]
     Active Substance: INSULIN NOS
     Indication: Type 1 diabetes mellitus
  5. OZEMPIC [Concomitant]
     Active Substance: SEMAGLUTIDE
     Indication: Type 1 diabetes mellitus
     Dates: start: 20250514

REACTIONS (11)
  - Polyarthritis [Not Recovered/Not Resolved]
  - Polymyalgia rheumatica [Unknown]
  - Chronic kidney disease [Unknown]
  - Metabolic dysfunction-associated steatohepatitis [Unknown]
  - Giant cell arteritis [Unknown]
  - Transient acantholytic dermatosis [Not Recovered/Not Resolved]
  - Anxiety [Not Recovered/Not Resolved]
  - Hunger [Not Recovered/Not Resolved]
  - Eye disorder [Unknown]
  - Blood glucose increased [Recovered/Resolved]
  - Circumstance or information capable of leading to medication error [Unknown]

NARRATIVE: CASE EVENT DATE: 20200601
